FAERS Safety Report 18181535 (Version 2)
Quarter: 2021Q1

REPORT INFORMATION
  Report Type: Spontaneous
  Country: CA (occurrence: CA)
  Receive Date: 20200821
  Receipt Date: 20210326
  Transmission Date: 20210419
  Serious: Yes (Hospitalization, Other)
  Sender: FDA-Public Use
  Company Number: CA-ASTRAZENECA-2020SF03291

PATIENT
  Age: 69 Year
  Sex: Female

DRUGS (10)
  1. ASA [Suspect]
     Active Substance: ASPIRIN
     Indication: ANTIPLATELET THERAPY
     Route: 048
     Dates: start: 20190624, end: 20200408
  2. LEVOSIZ [Concomitant]
     Dosage: 5.0MG UNKNOWN
     Route: 048
  3. BRILINTA [Suspect]
     Active Substance: TICAGRELOR
     Indication: ANTIPLATELET THERAPY
     Route: 048
     Dates: start: 20190624, end: 20200408
  4. SPIRONOLACTONE. [Concomitant]
     Active Substance: SPIRONOLACTONE
     Route: 048
  5. ULTRACET [Concomitant]
     Active Substance: ACETAMINOPHEN\TRAMADOL HYDROCHLORIDE
     Dosage: ACETAMINOPHEN 325 MG/TRAMADOL 37.5 MG, PRN
     Route: 048
  6. SODIUM BICARBONATE. [Concomitant]
     Active Substance: SODIUM BICARBONATE
     Route: 048
  7. FUROSEMIDE. [Concomitant]
     Active Substance: FUROSEMIDE
     Route: 048
  8. METFORMIN [Concomitant]
     Active Substance: METFORMIN HYDROCHLORIDE
     Route: 048
  9. AMLODIPINE [Concomitant]
     Active Substance: AMLODIPINE BESYLATE
     Route: 048
  10. NOVOMIX 30 [Concomitant]
     Active Substance: INSULIN ASPART
     Route: 065

REACTIONS (6)
  - Fall [Recovering/Resolving]
  - Subgaleal haematoma [Recovering/Resolving]
  - Intraventricular haemorrhage [Recovering/Resolving]
  - Head injury [Recovering/Resolving]
  - Subarachnoid haemorrhage [Recovering/Resolving]
  - Subdural haematoma [Recovering/Resolving]
